FAERS Safety Report 17580626 (Version 1)
Quarter: 2020Q1

REPORT INFORMATION
  Report Type: Spontaneous
  Country: GB (occurrence: GB)
  Receive Date: 20200325
  Receipt Date: 20200325
  Transmission Date: 20200409
  Serious: Yes (Hospitalization)
  Sender: FDA-Public Use
  Company Number: GB-MYLANLABS-2020M1030321

PATIENT
  Age: 13 Year
  Sex: Male

DRUGS (1)
  1. DOXYCYCLINE. [Suspect]
     Active Substance: DOXYCYCLINE
     Indication: PRODUCT USED FOR UNKNOWN INDICATION
     Dosage: 100 MILLIGRAM, QD
     Route: 048
     Dates: start: 20190910, end: 20190917

REACTIONS (8)
  - Erythema of eyelid [Recovering/Resolving]
  - Skin warm [Unknown]
  - Swelling of eyelid [Unknown]
  - Ear swelling [Unknown]
  - Rash [Unknown]
  - Pharyngeal swelling [Unknown]
  - Pharyngeal erythema [Recovering/Resolving]
  - Erythema [Recovering/Resolving]

NARRATIVE: CASE EVENT DATE: 20190917
